FAERS Safety Report 7718762-4 (Version None)
Quarter: 2011Q3

REPORT INFORMATION
  Report Type: 
  Country: None (occurrence: None)
  Receive Date: 20110830
  Receipt Date: 20110826
  Transmission Date: 20111222
  Serious: Yes (Hospitalization, Other)
  Sender: FDA-Public Use
  Company Number: GB-PFIZER INC-2011199016

PATIENT
  Age: 47 Year
  Sex: Female
  Weight: 102 kg

DRUGS (3)
  1. MEFENAMIC ACID [Concomitant]
     Dosage: UNK
     Dates: start: 20110725
  2. VARENICLINE TARTRATE [Suspect]
     Dosage: UNK
     Dates: start: 20110728
  3. OMEPRAZOLE [Concomitant]
     Dosage: UNK
     Dates: start: 20110506

REACTIONS (2)
  - MENORRHAGIA [None]
  - GASTROINTESTINAL HAEMORRHAGE [None]
